FAERS Safety Report 24958948 (Version 1)
Quarter: 2025Q1

REPORT INFORMATION
  Report Type: Other
  Country: US (occurrence: US)
  Receive Date: 20250212
  Receipt Date: 20250212
  Transmission Date: 20250409
  Serious: Yes (Hospitalization)
  Sender: ESJAY PHARMA
  Company Number: US-ESJAY PHARMA-000037

PATIENT
  Age: 74 Year
  Sex: Male

DRUGS (2)
  1. DRISDOL [Suspect]
     Active Substance: ERGOCALCIFEROL
     Indication: Hypocalcaemia
  2. FUROSEMIDE [Suspect]
     Active Substance: FUROSEMIDE
     Indication: Oedema peripheral

REACTIONS (3)
  - Hypomagnesaemia [Recovered/Resolved]
  - Hypocalcaemia [Recovered/Resolved]
  - Drug ineffective for unapproved indication [Unknown]
